FAERS Safety Report 6001990-6 (Version None)
Quarter: 2008Q4

REPORT INFORMATION
  Report Type: 
  Country: None (occurrence: None)
  Receive Date: 20081212
  Receipt Date: 20081205
  Transmission Date: 20090506
  Serious: Yes (Hospitalization)
  Sender: FDA-Public Use
  Company Number: WAES 0809USA04448

PATIENT
  Age: 56 Year
  Sex: Female
  Weight: 205.4795 kg

DRUGS (9)
  1. HYDRODIURIL [Suspect]
     Indication: HYPERTENSION
     Dosage: 25 MG/DAILY/PO
     Route: 048
     Dates: start: 19930101
  2. VASOTEC [Suspect]
     Indication: HYPERTENSION
     Dosage: 20 MG/BID/PO
     Route: 048
     Dates: start: 19930101, end: 20080719
  3. GERITOL COMPLETE [Concomitant]
  4. ACETAMINOPHEN [Concomitant]
  5. ASPIRIN [Concomitant]
  6. COD LIVER OIL [Concomitant]
  7. BLINDED THERAPY [Suspect]
     Indication: OBESITY
     Dates: start: 20080625, end: 20080714
  8. FELODIPINE [Suspect]
     Indication: HYPERTENSION
     Dosage: 5 MG/BID/PO
     Route: 048
     Dates: start: 19930101, end: 20080724
  9. FELODIPINE [Suspect]
     Indication: HYPERTENSION
     Dosage: 5 MG/DAILY/PO
     Route: 048
     Dates: start: 20080725

REACTIONS (2)
  - ANXIETY [None]
  - DYSPNOEA [None]
